FAERS Safety Report 8089256-4 (Version None)
Quarter: 2012Q1

REPORT INFORMATION
  Report Type: 
  Country: None (occurrence: None)
  Receive Date: 20120128
  Receipt Date: 20110707
  Transmission Date: 20120608
  Serious: No
  Sender: FDA-Public Use
  Company Number: US-ABBOTT-11P-163-0837710-00

PATIENT
  Sex: Male
  Weight: 118.04 kg

DRUGS (2)
  1. ENTOCORT EC [Concomitant]
     Indication: CROHN'S DISEASE
  2. HUMIRA [Suspect]
     Indication: CROHN'S DISEASE
     Route: 058
     Dates: start: 20080901

REACTIONS (1)
  - EAR INFECTION [None]
